FAERS Safety Report 19735157 (Version 2)
Quarter: 2021Q3

REPORT INFORMATION
  Report Type: Report from Study
  Country: None (occurrence: DE)
  Receive Date: 20210824
  Receipt Date: 20210903
  Transmission Date: 20211014
  Serious: Yes (Hospitalization, Other)
  Sender: FDA-Public Use
  Company Number: DE-ABBVIE-21K-062-4048136-00

PATIENT
  Age: 49 Year
  Sex: Male

DRUGS (1)
  1. HUMIRA [Suspect]
     Active Substance: ADALIMUMAB
     Indication: CROHN^S DISEASE
     Route: 058
     Dates: start: 20140510, end: 2015

REACTIONS (4)
  - Cerebrovascular accident [Not Recovered/Not Resolved]
  - Mental impairment [Unknown]
  - Disability [Unknown]
  - Epilepsy [Unknown]

NARRATIVE: CASE EVENT DATE: 20200907
